FAERS Safety Report 20611768 (Version 2)
Quarter: 2022Q1

REPORT INFORMATION
  Report Type: Spontaneous
  Country: ES (occurrence: ES)
  Receive Date: 20220318
  Receipt Date: 20220328
  Transmission Date: 20220423
  Serious: Yes (Other)
  Sender: FDA-Public Use
  Company Number: ES-MLMSERVICE-20220307-3411135-1

PATIENT
  Age: 48 Year
  Sex: Male

DRUGS (3)
  1. METRONIDAZOLE [Suspect]
     Active Substance: METRONIDAZOLE
     Indication: Giardiasis
     Dosage: 360 G, {TOTAL} (TOTAL)
  2. METRONIDAZOLE [Suspect]
     Active Substance: METRONIDAZOLE
     Indication: Amoebiasis
     Dosage: 800 MG, 8 H (HOURS)
  3. METRONIDAZOLE [Suspect]
     Active Substance: METRONIDAZOLE
     Dosage: 800 MG, 8 H (HOURS)

REACTIONS (9)
  - Prescription drug used without a prescription [Recovered/Resolved]
  - Incorrect product administration duration [Recovered/Resolved]
  - Toxic neuropathy [Recovered/Resolved]
  - Neurotoxicity [Recovered/Resolved]
  - Neuropathy peripheral [Recovered/Resolved]
  - Peripheral sensory neuropathy [Recovered/Resolved]
  - Peripheral motor neuropathy [Recovered/Resolved]
  - Cerebral disorder [Recovered/Resolved]
  - Toxicity to various agents [Recovered/Resolved]
